FAERS Safety Report 15211650 (Version 1)
Quarter: 2018Q3

REPORT INFORMATION
  Report Type: Spontaneous
  Country: US (occurrence: US)
  Receive Date: 20180702
  Receipt Date: 20180702
  Transmission Date: 20181010
  Serious: Yes (Disabling)
  Sender: FDA-Public Use
  Company Number: None

PATIENT
  Age: 34 Year
  Weight: 56.25 kg

DRUGS (1)
  1. CIPROFLOXACIN. [Suspect]
     Active Substance: CIPROFLOXACIN
     Indication: GASTROENTERITIS VIRAL
     Dates: start: 20180107, end: 20180110

REACTIONS (11)
  - Tendonitis [None]
  - Back pain [None]
  - Insomnia [None]
  - Muscle twitching [None]
  - Anxiety [None]
  - Muscle spasms [None]
  - Paraesthesia [None]
  - Neuralgia [None]
  - Weight decreased [None]
  - Tachycardia [None]
  - Gait disturbance [None]

NARRATIVE: CASE EVENT DATE: 20180128
